FAERS Safety Report 5747812-X (Version None)
Quarter: 2008Q2

REPORT INFORMATION
  Report Type: 
  Country: None (occurrence: None)
  Receive Date: 20080523
  Receipt Date: 20080520
  Transmission Date: 20081010
  Serious: Yes (Death)
  Sender: FDA-Public Use
  Company Number: B0514032A

PATIENT
  Age: 36 Year
  Sex: Male

DRUGS (5)
  1. SALBUTAMOL SULPHATE [Suspect]
     Indication: ASTHMA
     Route: 055
     Dates: end: 20080220
  2. SERETIDE [Suspect]
     Indication: ASTHMA
     Route: 055
  3. PREDNISOLONE [Concomitant]
     Route: 048
  4. STEROIDS [Concomitant]
     Route: 048
  5. CETIRIZINE HCL [Concomitant]
     Indication: ASTHMA
     Route: 065

REACTIONS (6)
  - ASTHMA [None]
  - DYSPNOEA [None]
  - PEAK EXPIRATORY FLOW RATE DECREASED [None]
  - PHARMACEUTICAL PRODUCT COMPLAINT [None]
  - SUDDEN DEATH [None]
  - WHEEZING [None]
